FAERS Safety Report 8921150 (Version 1)
Quarter: 2012Q4

REPORT INFORMATION
  Report Type: 
  Country: US (occurrence: US)
  Receive Date: 20121121
  Receipt Date: 20121121
  Transmission Date: 20130627
  Serious: Yes (Other)
  Sender: FDA-Public Use
  Company Number: US-BAXTER-2012BAX021980

PATIENT
  Age: 69 Year
  Sex: Female

DRUGS (6)
  1. DIANEAL LOW CALCIUM [Suspect]
     Indication: PERITONEAL DIALYSIS
     Route: 033
     Dates: start: 20120416
  2. DIANEAL LOW CALCIUM [Suspect]
     Route: 033
     Dates: start: 20120928
  3. DIANEAL LOW CALCIUM [Suspect]
     Indication: PERITONEAL DIALYSIS
     Route: 033
     Dates: start: 20120416
  4. DIANEAL LOW CALCIUM [Suspect]
     Route: 033
     Dates: start: 20120928
  5. EXTRANEAL [Suspect]
     Indication: PERITONEAL DIALYSIS
     Route: 033
     Dates: start: 20120319
  6. EXTRANEAL [Suspect]
     Route: 033
     Dates: start: 20120928

REACTIONS (3)
  - Staphylococcal infection [Recovered/Resolved]
  - Catheter site infection [Recovered/Resolved]
  - Peritonitis bacterial [Recovered/Resolved]
